FAERS Safety Report 7538973-0 (Version None)
Quarter: 2011Q2

REPORT INFORMATION
  Report Type: 
  Country: None (occurrence: None)
  Receive Date: 20110603
  Receipt Date: 20110520
  Transmission Date: 20111010
  Serious: Yes (Other)
  Sender: FDA-Public Use
  Company Number: 2011-1640

PATIENT
  Age: 30 Year
  Sex: Male

DRUGS (1)
  1. DYSPORT [Suspect]
     Indication: PRODUCT USED FOR UNKNOWN INDICATION
     Dosage: 120 UNITS (120 UNITS,SINGLE CYCLE), INTRAMUSCULAR
     Route: 030

REACTIONS (1)
  - DRUG INEFFECTIVE [None]
